FAERS Safety Report 9827708 (Version 1)
Quarter: 2014Q1

REPORT INFORMATION
  Report Type: Report from Study
  Country: US (occurrence: US)
  Receive Date: 20140117
  Receipt Date: 20140117
  Transmission Date: 20141002
  Serious: Yes (Death, Hospitalization, Other)
  Sender: FDA-Public Use
  Company Number: US-TEVA-419069USA

PATIENT
  Age: 63 Year
  Sex: Male
  Weight: 133 kg

DRUGS (4)
  1. DAUNORUBICIN [Suspect]
     Dosage: 60 MG/M2 DAILY; 139 MG ON DAYS 1,2,3
     Route: 042
     Dates: start: 20130619
  2. DAUNORUBICIN [Suspect]
     Dates: end: 20130621
  3. CYTARABINE [Suspect]
     Dosage: 100 MG/M2 DAILY; 223 MG BY CONTINIOUS INFUSION DAYS 1-7
     Route: 042
  4. CYTARABINE [Suspect]
     Dates: end: 20130625

REACTIONS (1)
  - Sepsis [Fatal]
